FAERS Safety Report 11679933 (Version 3)
Quarter: 2015Q4

REPORT INFORMATION
  Report Type: Spontaneous
  Country: US (occurrence: US)
  Receive Date: 20151027
  Receipt Date: 20151110
  Transmission Date: 20160304
  Serious: No
  Sender: FDA-Public Use
  Company Number: US-ELI_LILLY_AND_COMPANY-US201006000600

PATIENT
  Age: 79 Year
  Sex: Female

DRUGS (10)
  1. CALCIUM [Concomitant]
     Active Substance: CALCIUM
  2. FORTEO [Suspect]
     Active Substance: TERIPARATIDE
     Indication: OSTEOPOROSIS
     Dosage: 20 UG, DAILY (1/D)
     Route: 065
     Dates: start: 201005
  3. FORTEO [Suspect]
     Active Substance: TERIPARATIDE
     Dosage: 20 UG, DAILY (1/D)
     Route: 065
     Dates: start: 20100810, end: 20101204
  4. FORTEO [Suspect]
     Active Substance: TERIPARATIDE
     Dosage: 20 UG, DAILY (1/D)
     Route: 065
     Dates: start: 20110114
  5. FORTEO [Suspect]
     Active Substance: TERIPARATIDE
     Dosage: 20 UG, QD
     Route: 065
  6. VITAMIN C [Concomitant]
     Active Substance: ASCORBIC ACID
  7. DIURETICS [Concomitant]
     Active Substance: UNSPECIFIED INGREDIENT
  8. FORTEO [Suspect]
     Active Substance: TERIPARATIDE
     Dosage: 20 UG, QD
  9. VITAMINS [Concomitant]
     Active Substance: VITAMINS
  10. VITAMIN D [Concomitant]
     Active Substance: CHOLECALCIFEROL

REACTIONS (33)
  - Flatulence [Unknown]
  - Injection site pain [Not Recovered/Not Resolved]
  - Muscle spasms [Unknown]
  - Intentional product misuse [Recovered/Resolved]
  - Burning sensation [Unknown]
  - Abdominal discomfort [Unknown]
  - Malaise [Unknown]
  - Blood chloride decreased [Unknown]
  - Abdominal pain [Recovered/Resolved]
  - Chest pain [Unknown]
  - Cough [Not Recovered/Not Resolved]
  - Injection site bruising [Unknown]
  - Nausea [Unknown]
  - Lymphadenopathy [Unknown]
  - Dysphonia [Unknown]
  - Toothache [Not Recovered/Not Resolved]
  - Pollakiuria [Not Recovered/Not Resolved]
  - Feeling abnormal [Unknown]
  - Blood pressure increased [Unknown]
  - Dizziness [Not Recovered/Not Resolved]
  - Dysphagia [Unknown]
  - Injection site erythema [Unknown]
  - Blood pressure decreased [Recovered/Resolved]
  - Nasal congestion [Recovering/Resolving]
  - Oesophageal pain [Recovered/Resolved]
  - Abdominal pain upper [Recovered/Resolved]
  - Abdominal distension [Unknown]
  - Constipation [Not Recovered/Not Resolved]
  - Nasopharyngitis [Recovering/Resolving]
  - Rhinorrhoea [Recovering/Resolving]
  - Abdominal distension [Not Recovered/Not Resolved]
  - Flatulence [Not Recovered/Not Resolved]
  - Dry mouth [Unknown]

NARRATIVE: CASE EVENT DATE: 201008
